FAERS Safety Report 18298984 (Version 2)
Quarter: 2020Q4

REPORT INFORMATION
  Report Type: Report from Study
  Country: EC (occurrence: EC)
  Receive Date: 20200922
  Receipt Date: 20201019
  Transmission Date: 20210113
  Serious: Yes (Death, Hospitalization)
  Sender: FDA-Public Use
  Company Number: EC-INCYTE CORPORATION-2020IN008084

PATIENT

DRUGS (1)
  1. JAKAVI [Suspect]
     Active Substance: RUXOLITINIB
     Indication: MYELOFIBROSIS
     Dosage: 20 MG, BID
     Route: 048
     Dates: start: 20200730

REACTIONS (5)
  - Gait disturbance [Unknown]
  - Pain [Unknown]
  - Pulmonary oedema [Fatal]
  - Klebsiella infection [Fatal]
  - Fall [Unknown]

NARRATIVE: CASE EVENT DATE: 20200813
